FAERS Safety Report 17605758 (Version 1)
Quarter: 2020Q1

REPORT INFORMATION
  Report Type: Spontaneous
  Country: US (occurrence: US)
  Receive Date: 20200331
  Receipt Date: 20200331
  Transmission Date: 20200409
  Serious: Yes (Hospitalization)
  Sender: FDA-Public Use
  Company Number: US-MYLANLABS-2020M1033731

PATIENT
  Age: 62 Year
  Sex: Male

DRUGS (16)
  1. DIGOXIN. [Suspect]
     Active Substance: DIGOXIN
     Indication: ATRIAL FIBRILLATION
     Dosage: HE TOOK DIGOXIN BY MOUTH
     Route: 048
  2. DILTIAZEM. [Suspect]
     Active Substance: DILTIAZEM
     Indication: PRODUCT USED FOR UNKNOWN INDICATION
     Dosage: HE TOOK DILTIAZEM BY MOUTH
     Route: 048
  3. FENOFIBRATE. [Concomitant]
     Active Substance: FENOFIBRATE
     Indication: HYPERLIPIDAEMIA
     Dosage: HE TOOK FENOFIBRATE BY MOUTH
     Route: 048
  4. LORATADINE. [Suspect]
     Active Substance: LORATADINE
     Indication: PRODUCT USED FOR UNKNOWN INDICATION
     Dosage: HE TOOK LORATADINE BY MOUTH
     Route: 048
  5. SUCRALFATE. [Concomitant]
     Active Substance: SUCRALFATE
     Indication: PEPTIC ULCER
     Dosage: FOUR TIMES DAILY AND AT BEDTIME; INITIATED MORE THAN ONE YEAR PRIOR
     Route: 065
  6. ACETAMINOPHEN. [Suspect]
     Active Substance: ACETAMINOPHEN
     Indication: BACK PAIN
     Dosage: 500 MILLIGRAM, Q6H
     Route: 048
  7. ATORVASTATIN [Concomitant]
     Active Substance: ATORVASTATIN
     Indication: HYPERLIPIDAEMIA
     Dosage: HE TOOK ATORVASTATIN BY MOUTH
     Route: 048
  8. OMEPRAZOLE. [Concomitant]
     Active Substance: OMEPRAZOLE
     Indication: GASTROOESOPHAGEAL REFLUX DISEASE
     Dosage: HE TOOK OMEPRAZOLE BY MOUTH; INITIATED MORE THAN ONE YEAR PRIOR
     Route: 048
  9. OMEPRAZOLE. [Concomitant]
     Active Substance: OMEPRAZOLE
     Indication: PEPTIC ULCER
  10. TAMSULOSIN [Concomitant]
     Active Substance: TAMSULOSIN
     Indication: BENIGN PROSTATIC HYPERPLASIA
     Dosage: HE TOOK TAMSULOSIN BY MOUTH
     Route: 048
  11. FOLIC ACID. [Concomitant]
     Active Substance: FOLIC ACID
     Dosage: HE TOOK FOLIC ACID BY MOUTH
     Route: 048
  12. ACETAMINOPHEN AND DIPHENHYDRAMINE HYDROCHLORIDE [Suspect]
     Active Substance: ACETAMINOPHEN\DIPHENHYDRAMINE HYDROCHLORIDE
     Indication: BACK PAIN
     Dosage: HE TOOK 1-2 TABLETS BY MOUTH 3 TO 4 TIMES DAILY AND EVERY NIGHT
     Route: 048
  13. METFORMIN [Concomitant]
     Active Substance: METFORMIN HYDROCHLORIDE
     Indication: TYPE 2 DIABETES MELLITUS
     Dosage: HE TOOK METFORMIN BY MOUTH
     Route: 048
  14. NICOTINE. [Concomitant]
     Active Substance: NICOTINE
     Indication: SMOKING CESSATION THERAPY
     Dosage: HE APPLIED 1 PATCH TOPICALLY DAILY FOR 7 TO 14 DAYS
     Route: 061
  15. RIVAROXABAN [Concomitant]
     Active Substance: RIVAROXABAN
     Indication: ATRIAL FIBRILLATION
     Dosage: HE TOOK RIVAROXABAN BY MOUTH, ONCE NIGHTLY
     Route: 048
  16. FINASTERIDE. [Concomitant]
     Active Substance: FINASTERIDE
     Indication: BENIGN PROSTATIC HYPERPLASIA
     Dosage: HE TOOK FINASTERIDE BY MOUTH, ONCE NIGHTLY
     Route: 048

REACTIONS (2)
  - Injury [Recovered/Resolved]
  - Fall [Recovered/Resolved]
